FAERS Safety Report 9640514 (Version 2)
Quarter: 2013Q4

REPORT INFORMATION
  Report Type: Report from Study
  Country: US (occurrence: PR)
  Receive Date: 20131023
  Receipt Date: 20131023
  Transmission Date: 20140711
  Serious: Yes (Hospitalization, Other)
  Sender: FDA-Public Use
  Company Number: US-ABBVIE-13P-163-1102603-00

PATIENT
  Age: 32 Year
  Sex: Female
  Weight: 65.38 kg

DRUGS (5)
  1. LUPRON DEPOT [Suspect]
     Indication: ENDOMETRIOSIS
     Dates: start: 20130404
  2. LUPRON DEPOT [Suspect]
     Indication: ADHESION
  3. LUPRON DEPOT [Suspect]
     Indication: ABDOMINAL PAIN
  4. TORADOL [Concomitant]
     Indication: PAIN
     Route: 030
     Dates: start: 20130604, end: 20130604
  5. TYLENOL W/CODEINE [Concomitant]
     Indication: PAIN
     Route: 048
     Dates: start: 20130604, end: 20130611

REACTIONS (4)
  - Endometriosis [Recovering/Resolving]
  - Pain [Unknown]
  - Drug ineffective [Unknown]
  - Fall [Recovered/Resolved]
